FAERS Safety Report 18988428 (Version 1)
Quarter: 2021Q1

REPORT INFORMATION
  Report Type: Spontaneous
  Country: US (occurrence: US)
  Receive Date: 20210309
  Receipt Date: 20210309
  Transmission Date: 20210420
  Serious: No
  Sender: FDA-Public Use
  Company Number: US-SUNOVION-2021SUN000681

PATIENT
  Sex: Female

DRUGS (1)
  1. LATUDA [Suspect]
     Active Substance: LURASIDONE HYDROCHLORIDE
     Dosage: 40 MG
     Route: 048

REACTIONS (6)
  - Negative thoughts [Unknown]
  - Irritability [Unknown]
  - Nausea [Unknown]
  - Insomnia [Unknown]
  - Feeling abnormal [Unknown]
  - Withdrawal syndrome [Unknown]
